FAERS Safety Report 6230185-6 (Version None)
Quarter: 2009Q2

REPORT INFORMATION
  Report Type: 
  Country: None (occurrence: None)
  Receive Date: 20090615
  Receipt Date: 20090611
  Transmission Date: 20091009
  Serious: No
  Sender: FDA-Public Use
  Company Number: US-B.I. PHARMACEUTICALS,INC./RIDGEFIELD-2009-BP-07181BP

PATIENT
  Age: 47 Year
  Sex: Male
  Weight: 74.8 kg

DRUGS (1)
  1. ZANTAC [Suspect]
     Indication: GASTRITIS
     Dosage: 300MG
     Route: 048
     Dates: start: 20090501

REACTIONS (2)
  - DIARRHOEA [None]
  - FAECES DISCOLOURED [None]
